FAERS Safety Report 5009017-X (Version None)
Quarter: 2006Q2

REPORT INFORMATION
  Report Type: 
  Country: None (occurrence: None)
  Receive Date: 20060404
  Receipt Date: 20051108
  Transmission Date: 20061013
  Serious: No
  Sender: FDA-Public Use
  Company Number: US200511000441

PATIENT
  Age: 40 Year
  Sex: Female

DRUGS (1)
  1. CYMBALTA [Suspect]
     Dosage: 30 MG
     Dates: start: 20051027, end: 20051108

REACTIONS (1)
  - MOBILITY DECREASED [None]
